FAERS Safety Report 13739185 (Version 1)
Quarter: 2017Q3

REPORT INFORMATION
  Report Type: Spontaneous
  Country: US (occurrence: US)
  Receive Date: 20170710
  Receipt Date: 20170710
  Transmission Date: 20171127
  Serious: Yes (Hospitalization, Other)
  Sender: FDA-Public Use
  Company Number: US-SAOL THERAPEUTICS-2017SAO01059

PATIENT
  Sex: Male

DRUGS (2)
  1. LIORESAL [Suspect]
     Active Substance: BACLOFEN
     Indication: QUADRIPLEGIA
     Dosage: 300 ?G, \DAY
     Route: 037
  2. LIORESAL [Suspect]
     Active Substance: BACLOFEN
     Indication: CRANIOCEREBRAL INJURY
     Dosage: 700 ?G, \DAY
     Route: 037

REACTIONS (2)
  - Implant site erosion [Not Recovered/Not Resolved]
  - Implant site infection [Not Recovered/Not Resolved]
